FAERS Safety Report 23445894 (Version 2)
Quarter: 2025Q1

REPORT INFORMATION
  Report Type: Report from Study
  Country: US (occurrence: US)
  Receive Date: 20240126
  Receipt Date: 20250124
  Transmission Date: 20250408
  Serious: Yes (Hospitalization, Other)
  Sender: BRISTOL-MYERS SQUIBB COMPANY
  Company Number: US-BRISTOL-MYERS SQUIBB COMPANY-2024-012941

PATIENT
  Age: 80 Year
  Sex: Female
  Weight: 57.61 kg

DRUGS (1)
  1. REVLIMID [Suspect]
     Active Substance: LENALIDOMIDE
     Indication: Plasma cell myeloma
     Dosage: FREQUENCY: 21 DAYS THEN 7 DAYS OFF
     Route: 048
     Dates: start: 2021

REACTIONS (5)
  - Cerebrovascular accident [Unknown]
  - Abdominal pain upper [Unknown]
  - Dementia [Unknown]
  - Keloid scar [Unknown]
  - Cataract [Unknown]
